FAERS Safety Report 17933137 (Version 1)
Quarter: 2020Q2

REPORT INFORMATION
  Report Type: Spontaneous
  Country: AT (occurrence: AT)
  Receive Date: 20200623
  Receipt Date: 20200623
  Transmission Date: 20200714
  Serious: Yes (Life-Threatening)
  Sender: FDA-Public Use
  Company Number: NVSC2020AT176388

PATIENT
  Sex: Male
  Weight: 93 kg

DRUGS (2)
  1. ARGATROBAN. [Suspect]
     Active Substance: ARGATROBAN
     Indication: HEPARIN RESISTANCE
     Dosage: 1 MG/ML (5 MG/50 ML AT 0.5 ML/H)
     Route: 065
     Dates: start: 20160304, end: 20160310
  2. NORADRENALIN [Concomitant]
     Active Substance: NOREPINEPHRINE\NOREPINEPHRINE BITARTRATE
     Indication: CARDIOVASCULAR INSUFFICIENCY
     Dosage: UNK
     Route: 065
     Dates: start: 20160307

REACTIONS (2)
  - Haemorrhage [Recovered/Resolved]
  - Off label use [Unknown]

NARRATIVE: CASE EVENT DATE: 20160304
